FAERS Safety Report 25007842 (Version 2)
Quarter: 2025Q1

REPORT INFORMATION
  Report Type: Spontaneous
  Country: US (occurrence: US)
  Receive Date: 20250225
  Receipt Date: 20250321
  Transmission Date: 20250409
  Serious: Yes (Death, Hospitalization, Other)
  Sender: ENDO
  Company Number: US-ENDO USA, INC.-2025-000656

PATIENT
  Sex: Male

DRUGS (3)
  1. EVEROLIMUS [Suspect]
     Active Substance: EVEROLIMUS
     Indication: Skin cancer
     Route: 065
     Dates: start: 2024
  2. EVEROLIMUS [Suspect]
     Active Substance: EVEROLIMUS
     Indication: Renal disorder
  3. VALCYTE [Suspect]
     Active Substance: VALGANCICLOVIR HYDROCHLORIDE
     Indication: Antiviral treatment
     Route: 065

REACTIONS (10)
  - Hodgkin^s disease [Unknown]
  - Immunosuppression [Unknown]
  - Sepsis [Fatal]
  - Infection [Not Recovered/Not Resolved]
  - Limb injury [Unknown]
  - Delirium [Unknown]
  - Aggression [Unknown]
  - Anaemia [Unknown]
  - Impaired healing [Unknown]
  - Off label use [Recovered/Resolved]
